FAERS Safety Report 9371394 (Version 1)
Quarter: 2013Q2

REPORT INFORMATION
  Report Type: Spontaneous
  Country: AU (occurrence: AU)
  Receive Date: 20130627
  Receipt Date: 20130627
  Transmission Date: 20140414
  Serious: Yes (Life-Threatening, Hospitalization)
  Sender: FDA-Public Use
  Company Number: AU-ROCHE-1242078

PATIENT
  Age: 58 Year
  Sex: Female

DRUGS (3)
  1. CAPECITABINE [Suspect]
     Indication: BREAST CANCER
     Route: 065
  2. LAPATINIB [Suspect]
     Indication: BREAST CANCER
     Route: 065
  3. HERCEPTIN [Concomitant]
     Indication: OFF LABEL USE
     Route: 065

REACTIONS (6)
  - Diarrhoea [Unknown]
  - Vomiting [Unknown]
  - Malaise [Unknown]
  - Skin exfoliation [Unknown]
  - Aphagia [Unknown]
  - Disease progression [Unknown]
